FAERS Safety Report 22005651 (Version 4)
Quarter: 2023Q2

REPORT INFORMATION
  Report Type: Spontaneous
  Country: US (occurrence: US)
  Receive Date: 20230217
  Receipt Date: 20230622
  Transmission Date: 20230722
  Serious: Yes (Other)
  Sender: FDA-Public Use
  Company Number: US-PFIZER INC-2021889357

PATIENT
  Age: 78 Year
  Sex: Male

DRUGS (3)
  1. IBRANCE [Suspect]
     Active Substance: PALBOCICLIB
     Dosage: 125 MG, CYCLIC (1 TABLET DAILY FOR 21 DAYS 1 TABLET BY MOUTH DAILY X 21 DAYS EVERY 28 DAYS)
     Route: 048
     Dates: start: 20200922
  2. PALBOCICLIB [Concomitant]
     Active Substance: PALBOCICLIB
     Dosage: 1 DF, CYCLIC (DAILY FOR 21 DAYS)
     Route: 048
     Dates: start: 20191120, end: 20201018
  3. PALBOCICLIB [Concomitant]
     Active Substance: PALBOCICLIB
     Dosage: UNK
     Route: 048
     Dates: start: 20200106, end: 20201103

REACTIONS (1)
  - Hypoacusis [Unknown]
